FAERS Safety Report 7322801-2 (Version None)
Quarter: 2011Q1

REPORT INFORMATION
  Report Type: 
  Country: None (occurrence: None)
  Receive Date: 20110301
  Receipt Date: 20110218
  Transmission Date: 20110831
  Serious: Yes (Other)
  Sender: FDA-Public Use
  Company Number: CA-ABBOTT-11P-028-0707749-00

PATIENT
  Sex: Female
  Weight: 68.1 kg

DRUGS (4)
  1. METHOTREXATE [Concomitant]
     Indication: CROHN'S DISEASE
     Route: 048
  2. PANTOPRAZOLE [Concomitant]
     Indication: ULCER
     Route: 058
     Dates: start: 20100901
  3. COLESTID [Concomitant]
     Indication: CROHN'S DISEASE
     Route: 048
     Dates: start: 20100501
  4. HUMIRA [Suspect]
     Indication: CROHN'S DISEASE
     Route: 058
     Dates: start: 20100331

REACTIONS (2)
  - HERNIA [None]
  - PAIN [None]
